FAERS Safety Report 21555989 (Version 2)
Quarter: 2022Q4

REPORT INFORMATION
  Report Type: Spontaneous
  Country: CN (occurrence: CN)
  Receive Date: 20221104
  Receipt Date: 20221111
  Transmission Date: 20230112
  Serious: Yes (Hospitalization)
  Sender: FDA-Public Use
  Company Number: CN-002147023-NVSC2022CN246793

PATIENT
  Age: 36 Year
  Sex: Female
  Weight: 68 kg

DRUGS (10)
  1. OXCARBAZEPINE [Suspect]
     Active Substance: OXCARBAZEPINE
     Indication: Seizure
     Dosage: 0.3 G, BID
     Route: 048
     Dates: start: 20220918, end: 20220923
  2. OXCARBAZEPINE [Suspect]
     Active Substance: OXCARBAZEPINE
     Indication: Electrolyte imbalance
  3. OXCARBAZEPINE [Suspect]
     Active Substance: OXCARBAZEPINE
     Indication: Epilepsy
  4. SODIUM ESCINATE [Suspect]
     Active Substance: SODIUM ESCINATE
     Indication: Meningoencephalitis viral
     Dosage: 10 MG, QD
     Route: 065
     Dates: start: 20220920
  5. SODIUM THIOSULFATE [Concomitant]
     Active Substance: SODIUM THIOSULFATE
     Indication: Product used for unknown indication
     Dosage: 0.64 G, (ADDED TO 10 ML STERILE WATER FOR INJECTION), QD
     Route: 040
  6. BEPOTASTINE BESYLATE [Concomitant]
     Active Substance: BEPOTASTINE BESYLATE
     Indication: Product used for unknown indication
     Dosage: 10 MG, BID
     Route: 065
  7. LEVOCETIRIZINE HYDROCHLORIDE [Concomitant]
     Active Substance: LEVOCETIRIZINE HYDROCHLORIDE
     Indication: Product used for unknown indication
     Dosage: 5 MG, QN
     Route: 065
  8. BORIC ACID [Concomitant]
     Active Substance: BORIC ACID
     Indication: Product used for unknown indication
     Dosage: UNK, BID, (BORNEOL), (SACROCOCCYGEAL REGION, INNER RIGHT THIGH, WASH THE PREVIOUS OINTMENT WITH NORM
     Route: 061
  9. MOMETASONE FUROATE [Concomitant]
     Active Substance: MOMETASONE FUROATE
     Indication: Arthralgia
     Dosage: UNK, BID
     Route: 061
  10. CALCIUM GLUCONATE [Concomitant]
     Active Substance: CALCIUM GLUCONATE
     Indication: Product used for unknown indication
     Dosage: UNK, (20ML ADDED INTO 10% GLUCOSE INJECTION 100ML)
     Route: 041

REACTIONS (6)
  - Pruritus [Recovering/Resolving]
  - Rash [Recovering/Resolving]
  - Herpes virus infection [Unknown]
  - Erythema [Unknown]
  - Hypersensitivity [Unknown]
  - Urticaria [Unknown]

NARRATIVE: CASE EVENT DATE: 20220920
